FAERS Safety Report 8463481-2 (Version None)
Quarter: 2012Q2

REPORT INFORMATION
  Report Type: 
  Country: None (occurrence: None)
  Receive Date: 20120625
  Receipt Date: 20120611
  Transmission Date: 20120825
  Serious: Yes (Other)
  Sender: FDA-Public Use
  Company Number: US-BAYER-2012-058548

PATIENT
  Age: 65 Year
  Sex: Female
  Weight: 77 kg

DRUGS (8)
  1. ASPIRIN [Concomitant]
     Dosage: DAILY
  2. SIMVASTATIN [Concomitant]
  3. NEO-SYNEPHRINE NIGHTTIME 12-HOUR SPRAY [Suspect]
     Dosage: 1 DF, PRN, VOLUME 5OZ
     Dates: start: 20110601
  4. CORIAGE NOS [Concomitant]
  5. NEO-SYNEPHRINE EXTRA STRENGTH [Suspect]
     Dosage: 1 DF, QD, VOLUME 5OZ
     Route: 055
     Dates: start: 20100101
  6. PLAVIX [Concomitant]
  7. LISINOPRIL [Concomitant]
  8. NEO-SYNEPHRINE EXTRA STRENGTH [Suspect]
     Dosage: 1 DF, QD, VOLUME 5OZ
     Route: 055
     Dates: start: 20120601

REACTIONS (2)
  - DRUG INEFFECTIVE [None]
  - DRUG DEPENDENCE [None]
